FAERS Safety Report 7325287-7 (Version None)
Quarter: 2011Q1

REPORT INFORMATION
  Report Type: 
  Country: None (occurrence: None)
  Receive Date: 20110302
  Receipt Date: 20110222
  Transmission Date: 20110831
  Serious: Yes (Hospitalization)
  Sender: FDA-Public Use
  Company Number: US-SHIRE-SPV1-2011-00314

PATIENT
  Sex: Male

DRUGS (1)
  1. ELAPRASE [Suspect]
     Indication: MUCOPOLYSACCHARIDOSIS II
     Dosage: 4 VIALS, 1X/WEEK
     Route: 041

REACTIONS (1)
  - ACUTE RESPIRATORY FAILURE [None]
